FAERS Safety Report 23423681 (Version 1)
Quarter: 2024Q1

REPORT INFORMATION
  Report Type: Spontaneous
  Country: US (occurrence: US)
  Receive Date: 20240119
  Receipt Date: 20240119
  Transmission Date: 20240409
  Serious: No
  Sender: FDA-Public Use
  Company Number: US-ELI_LILLY_AND_COMPANY-US202401010227

PATIENT
  Age: 69 Year
  Sex: Male

DRUGS (2)
  1. ERBITUX [Suspect]
     Active Substance: CETUXIMAB
     Indication: Neoplasm malignant
     Dosage: UNK, UNKNOWN
     Route: 065
  2. BRAFTOVI [Suspect]
     Active Substance: ENCORAFENIB
     Indication: Neoplasm malignant
     Dosage: UNK UNK, UNKNOWN
     Route: 065

REACTIONS (3)
  - Bursitis [Unknown]
  - Tendonitis [Unknown]
  - Arthralgia [Unknown]
